FAERS Safety Report 16022908 (Version 3)
Quarter: 2020Q1

REPORT INFORMATION
  Report Type: Spontaneous
  Country: US (occurrence: US)
  Receive Date: 20190301
  Receipt Date: 20200213
  Transmission Date: 20200409
  Serious: Yes (Death)
  Sender: FDA-Public Use
  Company Number: US-PFIZER INC-2019087675

PATIENT
  Age: 59 Year
  Sex: Female

DRUGS (3)
  1. XELJANZ [Suspect]
     Active Substance: TOFACITINIB CITRATE
     Dosage: 5 MG, 2X/DAY
     Route: 048
  2. OTREXUP [Suspect]
     Active Substance: METHOTREXATE
     Dosage: UNK
     Dates: end: 201805
  3. RASUVO [Concomitant]
     Active Substance: METHOTREXATE SODIUM
     Dosage: 25 MG, ONCE WEEKLY
     Route: 058

REACTIONS (2)
  - Therapeutic product effect incomplete [Unknown]
  - Death [Fatal]
